FAERS Safety Report 20228734 (Version 1)
Quarter: 2021Q4

REPORT INFORMATION
  Report Type: Spontaneous
  Country: US (occurrence: US)
  Receive Date: 20211225
  Receipt Date: 20211225
  Transmission Date: 20220303
  Serious: No
  Sender: FDA-Public Use
  Company Number: US-SA-SAC20211223001212

PATIENT
  Age: 42 Year
  Sex: Male

DRUGS (1)
  1. DUPIXENT [Suspect]
     Active Substance: DUPILUMAB
     Indication: Chronic obstructive pulmonary disease
     Dosage: 300 MG, QOW
     Route: 058
     Dates: start: 20200225

REACTIONS (6)
  - Injection site dryness [Unknown]
  - Bronchitis [Unknown]
  - COVID-19 [Unknown]
  - Injection site exfoliation [Unknown]
  - Injection site bruising [Unknown]
  - Product use in unapproved indication [Unknown]
